FAERS Safety Report 21678983 (Version 3)
Quarter: 2025Q3

REPORT INFORMATION
  Report Type: Spontaneous
  Country: EU (occurrence: EU)
  Receive Date: 20221204
  Receipt Date: 20250731
  Transmission Date: 20251021
  Serious: Yes (Life-Threatening, Hospitalization, Other)
  Sender: JOHNSON AND JOHNSON
  Company Number: EU-Orion Corporation ORION PHARMA-OLAA2022-0007

PATIENT
  Age: 25 Year
  Sex: Male

DRUGS (2)
  1. HALOPERIDOL [Suspect]
     Active Substance: HALOPERIDOL
     Indication: Product used for unknown indication
     Route: 065
  2. OLANZAPINE [Suspect]
     Active Substance: OLANZAPINE
     Indication: Product used for unknown indication
     Route: 065

REACTIONS (4)
  - Hyponatraemia [Recovered/Resolved]
  - Brain oedema [Recovered/Resolved]
  - Inappropriate antidiuretic hormone secretion [Unknown]
  - Polydipsia [Unknown]

NARRATIVE: CASE EVENT DATE: 20220710
